FAERS Safety Report 8015338-9 (Version None)
Quarter: 2011Q4

REPORT INFORMATION
  Report Type: 
  Country: None (occurrence: None)
  Receive Date: 20111223
  Receipt Date: 20111214
  Transmission Date: 20120403
  Serious: Yes (Hospitalization)
  Sender: FDA-Public Use
  Company Number: DSM-2011-01381

PATIENT
  Age: 68 Year
  Sex: Female

DRUGS (7)
  1. OLMESARTAN MEDOXOMIL/AMLODIPINE BESYLATE/HYDROCHLOROTHIAZIDE [Suspect]
     Indication: ESSENTIAL HYPERTENSION
     Dosage: 20/5/12.5MG, ORAL
     Route: 048
     Dates: start: 20110803, end: 20110901
  2. RABEPRAZOLE SODIUM [Concomitant]
  3. SIMVASTATIN [Concomitant]
  4. ASPIRIN [Concomitant]
  5. LEVOTHYROXINE SODIUM [Suspect]
  6. MOXONIDINE [Concomitant]
  7. OMEPRAZOLE [Concomitant]

REACTIONS (3)
  - AMAUROSIS FUGAX [None]
  - DIPLOPIA [None]
  - BLOOD PRESSURE DECREASED [None]
